FAERS Safety Report 4383044-8 (Version None)
Quarter: 2004Q2

REPORT INFORMATION
  Report Type: 
  Country: None (occurrence: None)
  Receive Date: 20040614
  Receipt Date: 20040506
  Transmission Date: 20050107
  Serious: Yes (Hospitalization)
  Sender: FDA-Public Use
  Company Number: USA040362194

PATIENT
  Age: 66 Year
  Sex: Male

DRUGS (7)
  1. CIALIS [Suspect]
     Indication: ERECTILE DYSFUNCTION
     Dosage: 20 MG
  2. ANTIHYPERTENSIVES [Concomitant]
  3. TOPROL-XL [Concomitant]
  4. LIPITOR [Concomitant]
  5. TRAMADOL HCL [Concomitant]
  6. ALBUTEROL [Concomitant]
  7. ASPIRIN [Concomitant]

REACTIONS (3)
  - FLUSHING [None]
  - HYPOTENSION [None]
  - SYNCOPE [None]
